FAERS Safety Report 5877171-3 (Version None)
Quarter: 2008Q3

REPORT INFORMATION
  Report Type: 
  Country: None (occurrence: None)
  Receive Date: 20080910
  Receipt Date: 20080903
  Transmission Date: 20090109
  Serious: Yes (Other)
  Sender: FDA-Public Use
  Company Number: US-PFIZER INC-2008073910

PATIENT
  Sex: Female

DRUGS (1)
  1. LIPITOR [Suspect]
     Dates: start: 19980101

REACTIONS (2)
  - MENISCUS LESION [None]
  - MYALGIA [None]
